FAERS Safety Report 9792965 (Version 2)
Quarter: 2014Q1

REPORT INFORMATION
  Report Type: Spontaneous
  Country: US (occurrence: US)
  Receive Date: 20140102
  Receipt Date: 20140131
  Transmission Date: 20141002
  Serious: No
  Sender: FDA-Public Use
  Company Number: US-009507513-1401USA000243

PATIENT
  Age: 85 Year
  Sex: Female
  Weight: 56.69 kg

DRUGS (2)
  1. CLARITIN [Suspect]
     Indication: RHINORRHOEA
     Dosage: 10 MG, PRN
     Route: 048
     Dates: start: 201305, end: 201311
  2. CLARITIN [Suspect]
     Indication: SNEEZING

REACTIONS (1)
  - Drug effect decreased [Unknown]
